FAERS Safety Report 21157777 (Version 1)
Quarter: 2022Q3

REPORT INFORMATION
  Report Type: Spontaneous
  Country: US (occurrence: None)
  Receive Date: 20220731
  Receipt Date: 20220731
  Transmission Date: 20221027
  Serious: Yes (Disabling)
  Sender: FDA-Public Use
  Company Number: None

PATIENT
  Age: 88 Year
  Sex: Female
  Weight: 53.1 kg

DRUGS (3)
  1. DORZOLAMIDE [Suspect]
     Active Substance: DORZOLAMIDE
     Indication: Intraocular pressure increased
     Dosage: FREQUENCY : TWICE A DAY;?
     Route: 047
     Dates: start: 20220608, end: 20220622
  2. LATANOPROST [Concomitant]
     Active Substance: LATANOPROST
  3. Mucus Relief Cardio Magic [Concomitant]

REACTIONS (3)
  - Pain [None]
  - Skin irritation [None]
  - Glaucoma [None]

NARRATIVE: CASE EVENT DATE: 20220608
